FAERS Safety Report 6087265-8 (Version None)
Quarter: 2009Q1

REPORT INFORMATION
  Report Type: 
  Country: None (occurrence: None)
  Receive Date: 20090219
  Receipt Date: 20090219
  Transmission Date: 20090719
  Serious: Yes (Other)
  Sender: FDA-Public Use
  Company Number: None

PATIENT
  Age: 65 Year
  Sex: Female

DRUGS (1)
  1. ACTOS [Suspect]
     Indication: DIABETES MELLITUS
     Dosage: 45 MG 2 X ADAY MOUTH AT LEAST ONE YEAR
     Route: 048

REACTIONS (3)
  - DYSPNOEA [None]
  - JOINT SWELLING [None]
  - WEIGHT INCREASED [None]
